FAERS Safety Report 11142235 (Version 1)
Quarter: 2015Q2

REPORT INFORMATION
  Report Type: Spontaneous
  Country: US (occurrence: None)
  Receive Date: 20150526
  Receipt Date: 20150526
  Transmission Date: 20150821
  Serious: Yes (Disabling)
  Sender: FDA-Public Use
  Company Number: None

PATIENT
  Age: 18 Year
  Sex: Female
  Weight: 90.72 kg

DRUGS (2)
  1. SKYLA [Suspect]
     Active Substance: LEVONORGESTREL
     Dates: start: 20150214
  2. BIOTIN [Concomitant]
     Active Substance: BIOTIN

REACTIONS (1)
  - Mood swings [None]

NARRATIVE: CASE EVENT DATE: 20150212
